FAERS Safety Report 8557059-X (Version None)
Quarter: 2012Q3

REPORT INFORMATION
  Report Type: 
  Country: None (occurrence: None)
  Receive Date: 20120801
  Receipt Date: 20120727
  Transmission Date: 20120928
  Serious: Yes (Death)
  Sender: FDA-Public Use
  Company Number: RS-JNJFOC-20120710875

PATIENT
  Sex: Male

DRUGS (2)
  1. RISPERIDONE [Suspect]
     Route: 030
     Dates: start: 20100415
  2. RISPERIDONE [Suspect]
     Indication: PSYCHOTIC DISORDER
     Route: 030
     Dates: start: 20120712

REACTIONS (1)
  - COMPLETED SUICIDE [None]
